FAERS Safety Report 4618677-4 (Version None)
Quarter: 2005Q2

REPORT INFORMATION
  Report Type: 
  Country: None (occurrence: None)
  Receive Date: 20050311
  Receipt Date: 20041101
  Transmission Date: 20051028
  Serious: No
  Sender: FDA-Public Use
  Company Number: 2004-BP-09831BP

PATIENT
  Age: 73 Year
  Sex: Female

DRUGS (8)
  1. SPIRIVA [Suspect]
     Indication: CHRONIC OBSTRUCTIVE PULMONARY DISEASE
     Dosage: 18 MCG (18 MCG), IH
     Route: 055
     Dates: start: 20040801
  2. FORADIL [Concomitant]
  3. ALDACTAZIDE [Concomitant]
  4. LIPITOR [Concomitant]
  5. NASONEX [Concomitant]
  6. OXYGEN (OXYGEN) [Concomitant]
  7. SPIRIVA [Suspect]
  8. SPIRIVA [Suspect]

REACTIONS (2)
  - CONJUNCTIVITIS BACTERIAL [None]
  - PEAK EXPIRATORY FLOW RATE DECREASED [None]
